FAERS Safety Report 21746743 (Version 1)
Quarter: 2022Q4

REPORT INFORMATION
  Report Type: Spontaneous
  Country: US (occurrence: US)
  Receive Date: 20221219
  Receipt Date: 20221219
  Transmission Date: 20230112
  Serious: No
  Sender: FDA-Public Use
  Company Number: US-BRISTOL-MYERS SQUIBB COMPANY-2022-061535

PATIENT
  Age: 41 Year
  Sex: Female

DRUGS (3)
  1. ZEPOSIA [Suspect]
     Active Substance: OZANIMOD HYDROCHLORIDE
     Indication: Rheumatoid arthritis
     Dosage: 0.23 MG BY MOUTH 1 TIME A DAY FOR 4 DAYS
     Route: 048
     Dates: start: 20220524
  2. ZEPOSIA [Suspect]
     Active Substance: OZANIMOD HYDROCHLORIDE
     Dosage: 1 TIME A DAY FOR 3DAYS
     Route: 048
  3. ZEPOSIA [Suspect]
     Active Substance: OZANIMOD HYDROCHLORIDE
     Dosage: 0.92 MG 1 TIME A DAY THEREAFTER
     Route: 048

REACTIONS (1)
  - Drug ineffective for unapproved indication [Unknown]
